FAERS Safety Report 5832441-X (Version None)
Quarter: 2008Q3

REPORT INFORMATION
  Report Type: 
  Country: None (occurrence: None)
  Receive Date: 20080804
  Receipt Date: 20080723
  Transmission Date: 20090109
  Serious: Yes (Other)
  Sender: FDA-Public Use
  Company Number: US-SANOFI-SYNTHELABO-A03200803017

PATIENT
  Sex: Female

DRUGS (1)
  1. AMBIEN CR [Suspect]
     Indication: INSOMNIA
     Dosage: TOOK HALF A TABLET
     Route: 048
     Dates: start: 20080718, end: 20080718

REACTIONS (3)
  - INTENTIONAL DRUG MISUSE [None]
  - SHOPLIFTING [None]
  - SOMNAMBULISM [None]
